FAERS Safety Report 10188174 (Version 1)
Quarter: 2014Q2

REPORT INFORMATION
  Report Type: Spontaneous
  Country: US (occurrence: None)
  Receive Date: 20140521
  Receipt Date: 20140521
  Transmission Date: 20141212
  Serious: No
  Sender: FDA-Public Use
  Company Number: None

PATIENT
  Age: 58 Year
  Sex: Male
  Weight: 81.65 kg

DRUGS (6)
  1. CEFTRIAXONE 1 G SAGENT PHARMACEUTICALS [Suspect]
     Indication: URINARY TRACT INFECTION
     Dosage: 3 QD INTRAMUSCULAR
     Dates: start: 20140501, end: 20140505
  2. ASPIRIN [Concomitant]
  3. HYDROCODONE/ACETAMINOPHEN [Concomitant]
  4. LISINOPRIL [Concomitant]
  5. PLAVIX [Concomitant]
  6. QUETIAPINE XR [Concomitant]

REACTIONS (4)
  - Abdominal discomfort [None]
  - Nasopharyngitis [None]
  - Asthenia [None]
  - Lethargy [None]
